FAERS Safety Report 4813031-4 (Version None)
Quarter: 2005Q4

REPORT INFORMATION
  Report Type: 
  Country: None (occurrence: None)
  Receive Date: 20051026
  Receipt Date: 20051006
  Transmission Date: 20060501
  Serious: Yes (Other)
  Sender: FDA-Public Use
  Company Number: USA0509108734

PATIENT
  Age: 35 Year
  Sex: Female
  Weight: 101 kg

DRUGS (5)
  1. CYMBALTA [Suspect]
     Indication: DEPRESSION
     Dosage: 60 MG DAY
     Dates: start: 20050714, end: 20050818
  2. REMERON [Suspect]
  3. WELLBUTRIN [Concomitant]
  4. LORAZEPAM [Concomitant]
  5. LOPRESSOR [Concomitant]

REACTIONS (2)
  - HEPATIC STEATOSIS [None]
  - WEIGHT INCREASED [None]
